FAERS Safety Report 11910899 (Version 1)
Quarter: 2016Q1

REPORT INFORMATION
  Report Type: Spontaneous
  Country: US (occurrence: None)
  Receive Date: 20160111
  Receipt Date: 20160111
  Transmission Date: 20160526
  Serious: No
  Sender: FDA-Public Use
  Company Number: None

PATIENT
  Age: 54 Year
  Sex: Female
  Weight: 58.97 kg

DRUGS (3)
  1. HYDROCODONE-CHLORPHEN ER SUSP [Suspect]
     Active Substance: CHLORPHENIRAMINE\HYDROCODONE
     Indication: SINUSITIS
     Dosage: 5 ML AT BEDTIME
     Route: 048
  2. HYDROCODONE-CHLORPHEN ER SUSP [Suspect]
     Active Substance: CHLORPHENIRAMINE\HYDROCODONE
     Indication: UPPER RESPIRATORY TRACT INFECTION
     Dosage: 5 ML AT BEDTIME
     Route: 048
  3. VITAMINS [Concomitant]
     Active Substance: VITAMINS

REACTIONS (4)
  - Headache [None]
  - Partial seizures [None]
  - Photopsia [None]
  - Vomiting [None]

NARRATIVE: CASE EVENT DATE: 20160108
